FAERS Safety Report 4525135-4 (Version None)
Quarter: 2004Q4

REPORT INFORMATION
  Report Type: 
  Country: None (occurrence: None)
  Receive Date: 20041116
  Receipt Date: 20040720
  Transmission Date: 20050328
  Serious: No
  Sender: FDA-Public Use
  Company Number: S04-USA-04882-01

PATIENT
  Age: 73 Year
  Sex: Female

DRUGS (11)
  1. NAMENDA [Suspect]
     Indication: DEMENTIA ALZHEIMER'S TYPE
     Dosage: 5 MG QD PO
     Route: 048
     Dates: start: 20040331, end: 20040406
  2. NAMENDA [Suspect]
     Indication: DEMENTIA ALZHEIMER'S TYPE
     Dosage: 10 MG QD PO
     Route: 048
     Dates: start: 20040407, end: 20040413
  3. NAMENDA [Suspect]
     Indication: DEMENTIA ALZHEIMER'S TYPE
     Dosage: 15 MG QD PO
     Route: 048
     Dates: start: 20040414, end: 20040420
  4. NAMENDA [Suspect]
     Indication: DEMENTIA ALZHEIMER'S TYPE
     Dosage: 10 MG QD PO
     Route: 048
     Dates: start: 20040714
  5. NAMENDA [Suspect]
     Indication: DEMENTIA ALZHEIMER'S TYPE
     Dosage: 10 MG BID PO
     Route: 048
     Dates: start: 20040421, end: 20040713
  6. MELLARIL [Suspect]
     Indication: AGITATION
     Dosage: 10 MG QAM
     Dates: start: 20040119, end: 20040526
  7. DEPAKOTE [Suspect]
     Dosage: 250 MG TID
     Dates: start: 20030713, end: 20040418
  8. DEPAKOTE [Suspect]
     Dosage: 250 MG BID
     Dates: start: 20040419, end: 20040503
  9. DEPAKOTE [Suspect]
     Dosage: 250 MG QHS
     Dates: start: 20040504
  10. ATIVAN [Suspect]
     Indication: ANXIETY
     Dosage: 1.5 MN PRN
     Dates: start: 20030228, end: 20040718
  11. ZOLOFT [Concomitant]

REACTIONS (1)
  - CRYING [None]
